FAERS Safety Report 22645052 (Version 1)
Quarter: 2023Q2

REPORT INFORMATION
  Report Type: Spontaneous
  Country: JP (occurrence: JP)
  Receive Date: 20230627
  Receipt Date: 20230627
  Transmission Date: 20230722
  Serious: Yes (Death)
  Sender: FDA-Public Use
  Company Number: JP-CHUGAI-2023018969

PATIENT
  Age: 84 Year
  Sex: Male
  Weight: 63.9 kg

DRUGS (5)
  1. POLIVY [Suspect]
     Active Substance: POLATUZUMAB VEDOTIN-PIIQ
     Indication: Diffuse large B-cell lymphoma
     Route: 041
     Dates: start: 20230404, end: 20230404
  2. RITUXIMAB [Suspect]
     Active Substance: RITUXIMAB
     Indication: Diffuse large B-cell lymphoma
     Route: 041
     Dates: start: 20230403, end: 20230403
  3. CYCLOPHOSPHAMIDE [Suspect]
     Active Substance: CYCLOPHOSPHAMIDE
     Indication: Diffuse large B-cell lymphoma
     Route: 041
     Dates: start: 20230330, end: 20230330
  4. ADRIACIN [Suspect]
     Active Substance: DOXORUBICIN HYDROCHLORIDE
     Indication: Diffuse large B-cell lymphoma
     Route: 041
     Dates: start: 20230330, end: 20230330
  5. PREDNISOLONE ACETATE [Suspect]
     Active Substance: PREDNISOLONE ACETATE
     Indication: Diffuse large B-cell lymphoma
     Route: 041
     Dates: start: 20230330, end: 20230330

REACTIONS (2)
  - Fungaemia [Fatal]
  - Pneumonia [Fatal]

NARRATIVE: CASE EVENT DATE: 20230401
